FAERS Safety Report 6129288-6 (Version None)
Quarter: 2009Q1

REPORT INFORMATION
  Report Type: 
  Country: None (occurrence: None)
  Receive Date: 20090320
  Receipt Date: 20090311
  Transmission Date: 20090719
  Serious: Yes (Hospitalization)
  Sender: FDA-Public Use
  Company Number: 2009-192111-NL

PATIENT
  Age: 17 Year
  Sex: Female

DRUGS (5)
  1. ROCURONIUM BROMIDE [Suspect]
     Indication: MUSCLE RELAXANT THERAPY
     Dosage: INTRAVENOUS (NOS) / INTRAVENOUS DRIP
     Route: 042
     Dates: start: 20090216, end: 20090216
  2. ROCURONIUM BROMIDE [Suspect]
     Indication: MUSCLE RELAXANT THERAPY
     Dosage: INTRAVENOUS (NOS) / INTRAVENOUS DRIP
     Route: 042
     Dates: start: 20090216, end: 20090216
  3. PROPOFOL [Concomitant]
  4. SEVOFLURANE [Concomitant]
  5. CEFAZOLIN SODIUM [Concomitant]

REACTIONS (6)
  - COLD SWEAT [None]
  - FALL [None]
  - GAIT DISTURBANCE [None]
  - MUSCULAR WEAKNESS [None]
  - PALLOR [None]
  - WHEELCHAIR USER [None]
